FAERS Safety Report 6018865-9 (Version None)
Quarter: 2008Q4

REPORT INFORMATION
  Report Type: 
  Country: None (occurrence: None)
  Receive Date: 20081221
  Receipt Date: 20081221
  Transmission Date: 20090506
  Serious: Yes (Hospitalization)
  Sender: FDA-Public Use
  Company Number: None

PATIENT
  Sex: Female
  Weight: 53 kg

DRUGS (1)
  1. METOCLOPRAMIDE [Suspect]
     Indication: NAUSEA
     Dosage: 20 MG EVERY 6 HOURS IV
     Route: 042
     Dates: start: 20081216, end: 20081217

REACTIONS (2)
  - HALLUCINATION, VISUAL [None]
  - SPEECH DISORDER [None]
